FAERS Safety Report 10056307 (Version 1)
Quarter: 2014Q2

REPORT INFORMATION
  Report Type: Spontaneous
  Country: US (occurrence: US)
  Receive Date: 20140403
  Receipt Date: 20140403
  Transmission Date: 20141212
  Serious: No
  Sender: FDA-Public Use
  Company Number: US-009507513-1403USA014171

PATIENT
  Sex: Female

DRUGS (1)
  1. A+D MEDICATED OINTMENT [Suspect]
     Indication: RASH
     Dosage: UNK, QD

REACTIONS (2)
  - Off label use [Unknown]
  - Product quality issue [Unknown]
